FAERS Safety Report 7385427-0 (Version None)
Quarter: 2011Q1

REPORT INFORMATION
  Report Type: 
  Country: None (occurrence: None)
  Receive Date: 20110330
  Receipt Date: 20110324
  Transmission Date: 20110831
  Serious: Yes (Death, Other)
  Sender: FDA-Public Use
  Company Number: CA-AMGEN-CANSP2011009645

PATIENT

DRUGS (6)
  1. DOXORUBICIN [Concomitant]
  2. VINCRISTINE [Concomitant]
  3. PREDNISOLONE [Concomitant]
  4. CYCLOPHOSPHAMIDE [Concomitant]
  5. NEULASTA [Suspect]
     Indication: CHEMOTHERAPY
  6. RITUXIMAB [Concomitant]

REACTIONS (2)
  - DEATH [None]
  - THERAPEUTIC RESPONSE DECREASED [None]
